FAERS Safety Report 6133488-9 (Version None)
Quarter: 2009Q1

REPORT INFORMATION
  Report Type: 
  Country: None (occurrence: None)
  Receive Date: 20090326
  Receipt Date: 20090318
  Transmission Date: 20090719
  Serious: Yes (Hospitalization)
  Sender: FDA-Public Use
  Company Number: US-ASTRAZENECA-2008UW26023

PATIENT
  Age: 70 Year
  Sex: Female

DRUGS (8)
  1. SYMBICORT [Suspect]
     Indication: WHEEZING
     Dosage: 80/4.5 UG
     Route: 055
     Dates: start: 20080901
  2. SYMBICORT [Suspect]
     Dosage: 80/4.5 UG EVERY 15 MINUTES
     Route: 055
     Dates: end: 20081105
  3. AVELOX [Concomitant]
  4. PROTONIX [Concomitant]
  5. LOVASTATIN [Concomitant]
  6. ADVAIR HFA [Concomitant]
  7. ALBUTEROL [Concomitant]
  8. LISINOPRIL [Concomitant]
     Indication: HYPERTENSION
     Route: 048

REACTIONS (6)
  - BRONCHOSPASM [None]
  - DRUG INEFFECTIVE [None]
  - DYSPNOEA [None]
  - FATIGUE [None]
  - INTENTIONAL OVERDOSE [None]
  - ORAL CANDIDIASIS [None]
